FAERS Safety Report 4801818-3 (Version None)
Quarter: 2005Q3

REPORT INFORMATION
  Report Type: 
  Country: None (occurrence: None)
  Receive Date: 20050929
  Receipt Date: 20050705
  Transmission Date: 20060218
  Serious: Yes (Hospitalization)
  Sender: FDA-Public Use
  Company Number: 05P-163-0304916-00

PATIENT
  Age: 61 Year
  Sex: Male
  Weight: 107 kg

DRUGS (3)
  1. HUMIRA [Suspect]
     Indication: RHEUMATOID ARTHRITIS
     Dosage: 40 MG, 1 IN 2 WK, SUBCUTANEOUS
     Route: 058
     Dates: start: 20050316, end: 20050629
  2. METHOTREXATE [Concomitant]
  3. METFORMIN [Concomitant]

REACTIONS (4)
  - DYSPNOEA [None]
  - NIGHT SWEATS [None]
  - UPPER RESPIRATORY TRACT INFECTION [None]
  - WEIGHT DECREASED [None]
